FAERS Safety Report 5034843-0 (Version None)
Quarter: 2006Q2

REPORT INFORMATION
  Report Type: 
  Country: None (occurrence: None)
  Receive Date: 20060519
  Receipt Date: 20060411
  Transmission Date: 20061013
  Serious: No
  Sender: FDA-Public Use
  Company Number: TPA2006A00634

PATIENT
  Age: 64 Year
  Sex: Male
  Weight: 74.8435 kg

DRUGS (5)
  1. ROZEREM [Suspect]
     Indication: INSOMNIA
     Dosage: 8 MG, QHS, PER ORAL
     Route: 048
     Dates: start: 20060408, end: 20060409
  2. FOSAMAX (ALENDRONATE SODIUM) (70 MILLIGRAM) [Concomitant]
  3. MIACALCIN (CALCITONIN, SALMON) (SPRAY (NOT INHALATION)) [Concomitant]
  4. PREDNISOLONE [Concomitant]
  5. LIPITOR (ATORVASTATIN) (10 MILLIGRAM) [Concomitant]

REACTIONS (1)
  - NAUSEA [None]
